FAERS Safety Report 11919081 (Version 4)
Quarter: 2017Q1

REPORT INFORMATION
  Report Type: Spontaneous
  Country: US (occurrence: US)
  Receive Date: 20160115
  Receipt Date: 20170303
  Transmission Date: 20170428
  Serious: Yes (Hospitalization)
  Sender: FDA-Public Use
  Company Number: US-JNJFOC-20151225529

PATIENT
  Age: 58 Year

DRUGS (9)
  1. XARELTO [Suspect]
     Active Substance: RIVAROXABAN
     Indication: ANTICOAGULANT THERAPY
     Dosage: REPORTED A VARIED DOSE OF 15MG-20MG
     Route: 048
     Dates: end: 20150326
  2. XARELTO [Suspect]
     Active Substance: RIVAROXABAN
     Indication: CEREBROVASCULAR ACCIDENT PROPHYLAXIS
     Dosage: REPORTED A VARIED DOSE OF 15MG-20MG
     Route: 048
     Dates: end: 20150326
  3. XARELTO [Suspect]
     Active Substance: RIVAROXABAN
     Indication: CEREBROVASCULAR ACCIDENT PROPHYLAXIS
     Dosage: REPORTED A VARIED DOSE OF 15MG-20MG
     Route: 048
     Dates: start: 20131211
  4. XARELTO [Suspect]
     Active Substance: RIVAROXABAN
     Indication: CEREBROVASCULAR ACCIDENT PROPHYLAXIS
     Dosage: REPORTED A VARIED DOSE OF 15MG-20MG
     Route: 048
     Dates: start: 201406, end: 201501
  5. XARELTO [Suspect]
     Active Substance: RIVAROXABAN
     Indication: ATRIAL FIBRILLATION
     Dosage: REPORTED A VARIED DOSE OF 15MG-20MG
     Route: 048
     Dates: start: 201406, end: 201501
  6. XARELTO [Suspect]
     Active Substance: RIVAROXABAN
     Indication: ANTICOAGULANT THERAPY
     Dosage: REPORTED A VARIED DOSE OF 15MG-20MG
     Route: 048
     Dates: start: 201406, end: 201501
  7. XARELTO [Suspect]
     Active Substance: RIVAROXABAN
     Indication: ATRIAL FIBRILLATION
     Dosage: REPORTED A VARIED DOSE OF 15MG-20MG
     Route: 048
     Dates: start: 20131211
  8. XARELTO [Suspect]
     Active Substance: RIVAROXABAN
     Indication: ANTICOAGULANT THERAPY
     Dosage: REPORTED A VARIED DOSE OF 15MG-20MG
     Route: 048
     Dates: start: 20131211
  9. XARELTO [Suspect]
     Active Substance: RIVAROXABAN
     Indication: ATRIAL FIBRILLATION
     Dosage: REPORTED A VARIED DOSE OF 15MG-20MG
     Route: 048
     Dates: end: 20150326

REACTIONS (2)
  - Gastrointestinal haemorrhage [Unknown]
  - Rectal haemorrhage [Unknown]

NARRATIVE: CASE EVENT DATE: 20150120
